FAERS Safety Report 8392978-9 (Version None)
Quarter: 2012Q2

REPORT INFORMATION
  Report Type: 
  Country: None (occurrence: None)
  Receive Date: 20120529
  Receipt Date: 20120523
  Transmission Date: 20120825
  Serious: Yes (Other)
  Sender: FDA-Public Use
  Company Number: US-PFIZER INC-2012085613

PATIENT
  Sex: Female
  Weight: 79.819 kg

DRUGS (7)
  1. ATIVAN [Concomitant]
     Indication: ANXIETY
     Dosage: 1 MG, 1X/DAY
     Route: 048
     Dates: start: 20120331, end: 20120331
  2. DESVENLAFAXINE SUCCINATE MONOHYDRATE [Suspect]
     Dosage: 1 TAB, 1X/DAY
     Route: 048
     Dates: start: 20120404, end: 20120405
  3. VICODIN [Concomitant]
     Indication: BURSITIS
     Dosage: 500/5 MG, 0-2 X/WEEK AS NEEDED
     Route: 048
     Dates: start: 20111101
  4. DESVENLAFAXINE SUCCINATE MONOHYDRATE [Suspect]
     Indication: MAJOR DEPRESSION
     Dosage: 50 MG, 1X/DAY
     Route: 048
     Dates: start: 20120209, end: 20120215
  5. ADVIL [Concomitant]
     Indication: BURSITIS
     Dosage: 200-400 MG, AS NEEDED
     Route: 048
     Dates: start: 20110201
  6. DESVENLAFAXINE SUCCINATE MONOHYDRATE [Suspect]
     Dosage: 100 MG, 1X/DAY
     Route: 048
     Dates: start: 20120216, end: 20120403
  7. INDOMETHACIN [Concomitant]
     Indication: BURSITIS
     Dosage: 75 MG, AS NEEDED
     Route: 048
     Dates: start: 20110201, end: 20120301

REACTIONS (1)
  - ATRIAL FIBRILLATION [None]
